FAERS Safety Report 23471676 (Version 2)
Quarter: 2024Q1

REPORT INFORMATION
  Report Type: Spontaneous
  Country: JP (occurrence: None)
  Receive Date: 20240202
  Receipt Date: 20240213
  Transmission Date: 20240409
  Serious: Yes (Death)
  Sender: FDA-Public Use
  Company Number: 2024A024925

PATIENT
  Age: 91 Year
  Sex: Male

DRUGS (1)
  1. BREZTRI [Suspect]
     Active Substance: BUDESONIDE\FORMOTEROL\GLYCOPYRROLATE
     Indication: Emphysema
     Dosage: DOSE UNKNOWN
     Route: 055

REACTIONS (1)
  - Emphysema [Fatal]
